FAERS Safety Report 6998381-8 (Version None)
Quarter: 2010Q3

REPORT INFORMATION
  Report Type: 
  Country: None (occurrence: None)
  Receive Date: 20100920
  Receipt Date: 20100907
  Transmission Date: 20110219
  Serious: Yes (Hospitalization)
  Sender: FDA-Public Use
  Company Number: US-JNJFOC-20091107172

PATIENT
  Sex: Female
  Weight: 61.24 kg

DRUGS (2)
  1. REMICADE [Suspect]
     Indication: COLITIS ULCERATIVE
     Route: 042
  2. PREDNISONE [Concomitant]

REACTIONS (9)
  - COUGH [None]
  - HYPERSENSITIVITY [None]
  - HYPOKALAEMIA [None]
  - JOINT EFFUSION [None]
  - MALAISE [None]
  - NAUSEA [None]
  - PAIN [None]
  - POLYARTHRITIS [None]
  - VOMITING [None]
